FAERS Safety Report 4556731-6 (Version None)
Quarter: 2005Q1

REPORT INFORMATION
  Report Type: 
  Country: None (occurrence: None)
  Receive Date: 20050114
  Receipt Date: 20041228
  Transmission Date: 20050727
  Serious: Yes (Other)
  Sender: FDA-Public Use
  Company Number: DSA_25540_2004

PATIENT
  Age: 48 Year
  Sex: Female
  Weight: 107.5025 kg

DRUGS (7)
  1. CARDIZEM LA [Suspect]
     Indication: BLOOD PRESSURE INCREASED
     Dosage: 240 MG QHS
     Dates: start: 20041201
  2. CAFFEINE [Suspect]
     Dosage: DF
  3. HYDROCHLOROTHIAZIDE [Concomitant]
  4. METOPROLOL [Concomitant]
  5. ZYRTEC-D 12 HOUR [Concomitant]
  6. IBUPROFEN [Concomitant]
  7. VIOXX [Concomitant]

REACTIONS (2)
  - FEELING ABNORMAL [None]
  - SENSATION OF PRESSURE [None]
